FAERS Safety Report 16692261 (Version 1)
Quarter: 2019Q3

REPORT INFORMATION
  Report Type: Spontaneous
  Country: US (occurrence: US)
  Receive Date: 20190812
  Receipt Date: 20190812
  Transmission Date: 20191004
  Serious: No
  Sender: FDA-Public Use
  Company Number: US-MYLANLABS-2019M1071369

PATIENT
  Age: 12 Year
  Sex: Male

DRUGS (1)
  1. CLONIDINE. [Suspect]
     Active Substance: CLONIDINE
     Indication: AUTISM SPECTRUM DISORDER
     Dosage: 1 DOSAGE FORM, BID
     Route: 048

REACTIONS (5)
  - Off label use [Not Recovered/Not Resolved]
  - Wrong technique in product usage process [Unknown]
  - Skin burning sensation [Not Recovered/Not Resolved]
  - Pruritus [Recovered/Resolved]
  - Intentional dose omission [Not Recovered/Not Resolved]
